FAERS Safety Report 4850543-1 (Version None)
Quarter: 2005Q4

REPORT INFORMATION
  Report Type: 
  Country: None (occurrence: None)
  Receive Date: 20051208
  Receipt Date: 20051027
  Transmission Date: 20060501
  Serious: Yes (Hospitalization)
  Sender: FDA-Public Use
  Company Number: 2004115971

PATIENT
  Age: 39 Year
  Sex: Female
  Weight: 74.6 kg

DRUGS (4)
  1. HYDROCORTISONE SODIUM SUCCINATE [Suspect]
     Indication: ILL-DEFINED DISORDER
     Dosage: 15 MG (1 IN 1 D), ORAL
     Route: 048
  2. LEVOTHYROXINE SODIUM [Suspect]
     Indication: ILL-DEFINED DISORDER
     Dosage: 75 MCG (1 IN 1 D), ORAL
     Route: 048
  3. SOMATROPIN (SOMATROPIN) [Concomitant]
  4. TRISEKVENS (ESTRADIOL, ESTRIOL, NORETHISTERONE ACETATE) [Concomitant]

REACTIONS (2)
  - ADRENAL INSUFFICIENCY [None]
  - GASTROENTERITIS [None]
